FAERS Safety Report 6772294-9 (Version None)
Quarter: 2010Q2

REPORT INFORMATION
  Report Type: 
  Country: None (occurrence: None)
  Receive Date: 20100616
  Receipt Date: 20090925
  Transmission Date: 20101027
  Serious: No
  Sender: FDA-Public Use
  Company Number: US-ASTRAZENECA-2009SE10384

PATIENT
  Sex: Male

DRUGS (3)
  1. PULMICORT FLEXHALER [Suspect]
     Indication: ASTHMA
     Dosage: 90 MCG
     Route: 055
     Dates: start: 20090701
  2. ALBUTEROL [Concomitant]
     Indication: ASTHMA
     Route: 055
  3. CLARITIN [Concomitant]
     Indication: MULTIPLE ALLERGIES
     Route: 048

REACTIONS (4)
  - CHEST PAIN [None]
  - FEELING ABNORMAL [None]
  - PRODUCT TASTE ABNORMAL [None]
  - TACHYCARDIA [None]
